FAERS Safety Report 6931252-1 (Version None)
Quarter: 2010Q3

REPORT INFORMATION
  Report Type: 
  Country: None (occurrence: None)
  Receive Date: 20100816
  Receipt Date: 20100809
  Transmission Date: 20110219
  Serious: Yes (Death, Life-Threatening)
  Sender: FDA-Public Use
  Company Number: 2010SP035031

PATIENT
  Age: 63 Year
  Sex: Female

DRUGS (2)
  1. TEMODAL [Suspect]
     Indication: MIXED OLIGO-ASTROCYTOMA
     Dosage: 100 MG;PO
     Route: 048
     Dates: start: 20100121, end: 20100304
  2. FERON [Concomitant]

REACTIONS (4)
  - HEPATITIS B [None]
  - JAUNDICE [None]
  - LYMPHOCYTE COUNT DECREASED [None]
  - MALAISE [None]
